FAERS Safety Report 6103349-X (Version None)
Quarter: 2009Q1

REPORT INFORMATION
  Report Type: 
  Country: None (occurrence: None)
  Receive Date: 20090305
  Receipt Date: 20090202
  Transmission Date: 20090719
  Serious: No
  Sender: FDA-Public Use
  Company Number: US-BAYER-200912716NA

PATIENT
  Age: 29 Year
  Sex: Female
  Weight: 86 kg

DRUGS (1)
  1. MIRENA [Suspect]
     Indication: CONTRACEPTION
     Route: 015
     Dates: start: 20050101

REACTIONS (4)
  - BREAST SWELLING [None]
  - BREAST TENDERNESS [None]
  - PREMENSTRUAL SYNDROME [None]
  - VAGINAL HAEMORRHAGE [None]
